FAERS Safety Report 25994777 (Version 3)
Quarter: 2025Q4

REPORT INFORMATION
  Report Type: Spontaneous
  Country: CN (occurrence: None)
  Receive Date: 20251104
  Receipt Date: 20251124
  Transmission Date: 20260117
  Serious: Yes (Hospitalization, Other)
  Sender: UCB
  Company Number: CN-UCBSA-2025068126

PATIENT
  Age: 14 Year

DRUGS (4)
  1. LEVETIRACETAM [Suspect]
     Active Substance: LEVETIRACETAM
     Indication: Epilepsy
     Dosage: 250 MILLIGRAM, 2X/DAY (BID)
  2. LAMOTRIGINE [Suspect]
     Active Substance: LAMOTRIGINE
     Indication: Epilepsy
     Dosage: 75 MILLIGRAM, 2X/DAY (BID)
  3. MOXALACTAM [Concomitant]
     Active Substance: MOXALACTAM
     Indication: Product used for unknown indication
     Dosage: UNK
  4. IBUPROFEN [Concomitant]
     Active Substance: IBUPROFEN
     Indication: Product used for unknown indication
     Dosage: UNK

REACTIONS (7)
  - Toxic epidermal necrolysis [Recovering/Resolving]
  - Drug-induced liver injury [Not Recovered/Not Resolved]
  - Blood bilirubin unconjugated increased [Recovering/Resolving]
  - Epidermolysis bullosa [Recovering/Resolving]
  - Hepatitis cholestatic [Not Recovered/Not Resolved]
  - Cholangitis [Not Recovered/Not Resolved]
  - Biliary dilatation [Not Recovered/Not Resolved]
